FAERS Safety Report 5795404-9 (Version None)
Quarter: 2008Q2

REPORT INFORMATION
  Report Type: 
  Country: None (occurrence: None)
  Receive Date: 20080630
  Receipt Date: 20080618
  Transmission Date: 20081010
  Serious: Yes (Hospitalization, Other)
  Sender: FDA-Public Use
  Company Number: JP-PFIZER INC-2008043986

PATIENT
  Sex: Male
  Weight: 68 kg

DRUGS (4)
  1. GABAPEN [Suspect]
     Indication: NEURALGIA
     Route: 048
  2. CONIEL [Concomitant]
  3. TRYPTANOL [Concomitant]
     Route: 048
     Dates: start: 20080310
  4. CLONAZEPAM [Concomitant]
     Route: 048
     Dates: start: 20080304

REACTIONS (5)
  - GAMMA-GLUTAMYLTRANSFERASE INCREASED [None]
  - HYPERCHOLESTEROLAEMIA [None]
  - HYPERTRIGLYCERIDAEMIA [None]
  - NEPHROTIC SYNDROME [None]
  - PROTEINURIA [None]
